FAERS Safety Report 10263112 (Version 1)
Quarter: 2014Q2

REPORT INFORMATION
  Report Type: Report from Study
  Country: US (occurrence: US)
  Receive Date: 20140626
  Receipt Date: 20140626
  Transmission Date: 20141212
  Serious: Yes (Death)
  Sender: FDA-Public Use
  Company Number: US-MYLANLABS-2014S1001842

PATIENT
  Age: 78 Year
  Sex: Female

DRUGS (21)
  1. CLOZAPINE TABLETS [Suspect]
     Indication: DEMENTIA
     Route: 048
     Dates: start: 20130222
  2. HYDROCODONE/ACETAMINOPHEN /00607101/ [Concomitant]
     Dosage: 650MG APAP
     Route: 048
  3. LACTULOSE [Concomitant]
     Indication: CONSTIPATION
     Dosage: DOSE UNIT:10
     Route: 048
  4. RIVASTIGMINE [Concomitant]
  5. SINEMET [Concomitant]
  6. VALIUM [Concomitant]
  7. ROBAXIN [Concomitant]
  8. BUSPIRONE [Concomitant]
  9. COUMADIN [Concomitant]
  10. VITAMIN B12 [Concomitant]
  11. MECLIZINE [Concomitant]
  12. ZOFRAN [Concomitant]
  13. TYLENOL [Concomitant]
  14. FOLIC ACID [Concomitant]
  15. THIAMINE [Concomitant]
  16. LEXAPRO /01588501/ [Concomitant]
  17. LORTAB [Concomitant]
  18. MULTIVITAMIN [Concomitant]
  19. OMEPRAZOLE [Concomitant]
  20. KCL [Concomitant]
  21. DIGOXIN [Concomitant]

REACTIONS (1)
  - Endometrial cancer [Fatal]
